FAERS Safety Report 16367444 (Version 1)
Quarter: 2019Q2

REPORT INFORMATION
  Report Type: Spontaneous
  Country: GB (occurrence: GB)
  Receive Date: 20190529
  Receipt Date: 20190529
  Transmission Date: 20190711
  Serious: Yes (Disabling)
  Sender: FDA-Public Use
  Company Number: GB-SAMSUNG BIOEPIS-SB-2019-12223

PATIENT
  Age: 66 Year
  Sex: Male
  Weight: 72 kg

DRUGS (2)
  1. ONTRUZANT [Suspect]
     Active Substance: TRASTUZUMAB-DTTB
     Indication: CHEMOTHERAPY
     Route: 042
     Dates: start: 20181031
  2. LEVODOPA [Suspect]
     Active Substance: LEVODOPA
     Indication: PARKINSON^S DISEASE
     Dosage: UNKNOWN
     Route: 065

REACTIONS (3)
  - Balance disorder [Unknown]
  - Inhibitory drug interaction [Not Recovered/Not Resolved]
  - Incoherent [Unknown]

NARRATIVE: CASE EVENT DATE: 20181031
